FAERS Safety Report 8989656 (Version 1)
Quarter: 2012Q4

REPORT INFORMATION
  Report Type: 
  Country: FR (occurrence: FR)
  Receive Date: 20121228
  Receipt Date: 20121228
  Transmission Date: 20130627
  Serious: Yes (Other)
  Sender: FDA-Public Use
  Company Number: FR-AMGEN-FRASP2012082564

PATIENT

DRUGS (1)
  1. NPLATE [Suspect]
     Route: 064

REACTIONS (1)
  - Premature baby [Unknown]
